FAERS Safety Report 19740740 (Version 9)
Quarter: 2023Q2

REPORT INFORMATION
  Report Type: Report from Study
  Country: RU (occurrence: RU)
  Receive Date: 20210824
  Receipt Date: 20230601
  Transmission Date: 20230721
  Serious: Yes (Life-Threatening, Hospitalization)
  Sender: FDA-Public Use
  Company Number: RU-PFIZER INC-202100918099

PATIENT
  Age: 67 Year
  Sex: Female
  Weight: 84 kg

DRUGS (12)
  1. PALBOCICLIB [Suspect]
     Active Substance: PALBOCICLIB
     Indication: Breast cancer metastatic
     Dosage: 125 MG,1 IN 1 D
     Route: 048
     Dates: start: 20201117
  2. PALBOCICLIB [Suspect]
     Active Substance: PALBOCICLIB
     Dosage: 125 MG,1 IN 1 D
     Route: 048
     Dates: start: 20230502
  3. FULVESTRANT [Suspect]
     Active Substance: FULVESTRANT
     Indication: Breast cancer metastatic
     Dosage: 500 MG,1 IN 4 WK
     Route: 030
     Dates: start: 20201117
  4. FULVESTRANT [Suspect]
     Active Substance: FULVESTRANT
     Dosage: 500 MG,1 IN 4 WK
     Route: 030
  5. INAVOLISIB [Suspect]
     Active Substance: INAVOLISIB
     Indication: Breast cancer metastatic
     Dosage: 9 MG,1 IN 1 D
     Route: 048
     Dates: start: 20201117
  6. INAVOLISIB [Suspect]
     Active Substance: INAVOLISIB
     Dosage: 9 MG,1 IN 1 D
     Route: 048
  7. VAMLOSET [Concomitant]
     Indication: Hypertension
     Dosage: 170 MG,1 IN 1 D
     Route: 048
     Dates: start: 2019
  8. BISOPROLOL FUMARATE [Concomitant]
     Active Substance: BISOPROLOL FUMARATE
     Indication: Hypertension
     Dosage: 12.5 MG,1 IN 1 AS REQUIRED
     Route: 048
     Dates: start: 2019
  9. RIVAROXABAN [Concomitant]
     Active Substance: RIVAROXABAN
     Indication: Deep vein thrombosis
     Dosage: 20 MG,1 IN 1 D
     Route: 048
     Dates: start: 20210619, end: 20210718
  10. RIVAROXABAN [Concomitant]
     Active Substance: RIVAROXABAN
     Indication: Thrombosis
     Dosage: 15 MG,2 IN 1 D
     Route: 048
     Dates: start: 20210719, end: 20210801
  11. RIVAROXABAN [Concomitant]
     Active Substance: RIVAROXABAN
     Dosage: 20 MG,1 IN 1 D
     Route: 048
     Dates: start: 20210802, end: 20210802
  12. APIXABAN [Concomitant]
     Active Substance: APIXABAN
     Dosage: 5 MG,2 IN 1 D
     Route: 048
     Dates: start: 20230503

REACTIONS (1)
  - Embolism [Not Recovered/Not Resolved]

NARRATIVE: CASE EVENT DATE: 20210713
